FAERS Safety Report 20226663 (Version 5)
Quarter: 2024Q4

REPORT INFORMATION
  Report Type: Report from Study
  Country: JP (occurrence: JP)
  Receive Date: 20211224
  Receipt Date: 20241216
  Transmission Date: 20250114
  Serious: Yes (Other)
  Sender: VIIV
  Company Number: JP-VIIV HEALTHCARE LIMITED-JP2021JPN261019

PATIENT

DRUGS (10)
  1. DOLUTEGRAVIR SODIUM\LAMIVUDINE [Suspect]
     Active Substance: DOLUTEGRAVIR SODIUM\LAMIVUDINE
     Indication: HIV infection
     Dosage: 1 DF, 1D
     Dates: start: 20201116
  2. XYZAL [Concomitant]
     Active Substance: LEVOCETIRIZINE DIHYDROCHLORIDE
     Indication: Drug eruption
     Dosage: UNK
     Dates: start: 20210217, end: 20210416
  3. XYZAL [Concomitant]
     Active Substance: LEVOCETIRIZINE DIHYDROCHLORIDE
     Indication: Seasonal allergy
     Dosage: UNK
     Dates: start: 20220315, end: 20220414
  4. ALESION [Concomitant]
     Active Substance: EPINASTINE HYDROCHLORIDE
     Indication: Seasonal allergy
     Dosage: UNK
     Dates: start: 20210217, end: 20210416
  5. ALESION [Concomitant]
     Active Substance: EPINASTINE HYDROCHLORIDE
     Dosage: UNK
     Dates: start: 20220315, end: 20220414
  6. ALESION [Concomitant]
     Active Substance: EPINASTINE HYDROCHLORIDE
     Dosage: UNK
     Dates: start: 20230228, end: 20230427
  7. FLUTICASONE FUROATE [Concomitant]
     Active Substance: FLUTICASONE FUROATE
     Indication: Seasonal allergy
     Dosage: UNK
     Dates: start: 20210217, end: 20210416
  8. FLUTICASONE FUROATE [Concomitant]
     Active Substance: FLUTICASONE FUROATE
     Dosage: UNK
     Dates: start: 20220315, end: 20220414
  9. FLUTICASONE FUROATE [Concomitant]
     Active Substance: FLUTICASONE FUROATE
     Dosage: UNK
     Dates: start: 20230228, end: 20230427
  10. BILASTINE [Concomitant]
     Active Substance: BILASTINE
     Dosage: UNK
     Dates: start: 20230228, end: 20230427

REACTIONS (12)
  - Oropharyngeal gonococcal infection [Recovering/Resolving]
  - Pharyngitis [Recovering/Resolving]
  - Diarrhoea [Recovered/Resolved]
  - Syphilis [Recovering/Resolving]
  - Drug eruption [Recovering/Resolving]
  - Oropharyngeal gonococcal infection [Recovering/Resolving]
  - Pharyngitis [Recovering/Resolving]
  - COVID-19 [Recovering/Resolving]
  - Urticaria [Recovering/Resolving]
  - Urticaria [Recovering/Resolving]
  - Influenza [Recovering/Resolving]
  - Urticaria [Not Recovered/Not Resolved]

NARRATIVE: CASE EVENT DATE: 20201123
